FAERS Safety Report 7725571-9 (Version None)
Quarter: 2011Q3

REPORT INFORMATION
  Report Type: 
  Country: None (occurrence: None)
  Receive Date: 20110830
  Receipt Date: 20110719
  Transmission Date: 20111222
  Serious: Yes (Life-Threatening, Hospitalization, Other)
  Sender: FDA-Public Use
  Company Number: GER/GER/11/0019188

PATIENT
  Age: 43 Year
  Sex: Female
  Weight: 68 kg

DRUGS (11)
  1. HCT 25 MG (HYDROCHLOROTHIAZIDE) [Concomitant]
  2. AARANE N [Concomitant]
  3. BELOC-ZOK 47.5 MG [Concomitant]
  4. VOLTAREN [Suspect]
     Indication: ABDOMINAL ADHESIONS
     Dosage: 50 MG, ORAL
     Route: 048
     Dates: start: 19800101
  5. VOLTAREN [Suspect]
     Indication: ARTHRALGIA
     Dosage: 50 MG, ORAL
     Route: 048
     Dates: start: 19800101
  6. SERTRALINE HYDROCHLORIDE [Concomitant]
  7. METFORMIN HCL [Suspect]
     Indication: PRODUCT USED FOR UNKNOWN INDICATION
     Dosage: 1000 MG, 3 IN 1 D, ORAL
     Route: 048
     Dates: start: 20040101, end: 20110221
  8. L-THYROXIN 125 UG [Concomitant]
  9. OMEPRAZOL 40 MG [Concomitant]
  10. ZYPREXA [Concomitant]
  11. FERROSANOL DUODENAL 100MG (FERROUS GLYCINE SULFATE) [Concomitant]

REACTIONS (3)
  - RENAL FAILURE ACUTE [None]
  - DIALYSIS [None]
  - LACTIC ACIDOSIS [None]
